FAERS Safety Report 4496484-3 (Version None)
Quarter: 2004Q4

REPORT INFORMATION
  Report Type: 
  Country: None (occurrence: None)
  Receive Date: 20041102
  Receipt Date: 20041018
  Transmission Date: 20050328
  Serious: Yes (Life-Threatening)
  Sender: FDA-Public Use
  Company Number: 239916

PATIENT
  Age: 25 Year
  Sex: Female

DRUGS (5)
  1. NOVOSEVEN [Suspect]
     Indication: PANCYTOPENIA
     Dosage: IN TOTAL  19 MG, INTRAVENOUS
     Route: 042
     Dates: start: 20040616
  2. CYTOTEC [Concomitant]
  3. SYNTOCINON [Concomitant]
  4. MORPHINE SULFATE [Concomitant]
  5. LIQUAEMIN INJ [Concomitant]

REACTIONS (4)
  - ABDOMINAL PAIN [None]
  - BUDD-CHIARI SYNDROME [None]
  - PULMONARY EMBOLISM [None]
  - VENA CAVA THROMBOSIS [None]
